FAERS Safety Report 14304975 (Version 1)
Quarter: 2017Q4

REPORT INFORMATION
  Report Type: Spontaneous
  Country: US (occurrence: US)
  Receive Date: 20171219
  Receipt Date: 20171219
  Transmission Date: 20180321
  Serious: Yes (Other)
  Sender: FDA-Public Use
  Company Number: US-OTSUKA-16465692

PATIENT
  Sex: Female
  Weight: 77.1 kg

DRUGS (1)
  1. ABILIFY [Suspect]
     Active Substance: ARIPIPRAZOLE
     Indication: DEPRESSION
     Dosage: STARTED 4-5 YEARS AGO  IT IS STOPPED APPR 1.5YRS AGO
     Route: 065

REACTIONS (2)
  - Parkinson^s disease [Unknown]
  - Weight increased [Unknown]
